FAERS Safety Report 23837357 (Version 6)
Quarter: 2024Q3

REPORT INFORMATION
  Report Type: Spontaneous
  Country: ES (occurrence: ES)
  Receive Date: 20240509
  Receipt Date: 20240901
  Transmission Date: 20241017
  Serious: Yes (Hospitalization, Other)
  Sender: AUROBINDO
  Company Number: ES-009507513-2404ESP011297

PATIENT
  Age: 47 Year
  Sex: Female
  Weight: 59.1 kg

DRUGS (57)
  1. CARBOPLATIN [Suspect]
     Active Substance: CARBOPLATIN
     Indication: Non-small cell lung cancer metastatic
     Dosage: UNK, C1 5 AREA UNDER THE CURVE (AUC) - ONGOING
     Route: 042
     Dates: start: 20240405
  2. CARBOPLATIN [Suspect]
     Active Substance: CARBOPLATIN
     Indication: Pneumonia
  3. CARBOPLATIN [Suspect]
     Active Substance: CARBOPLATIN
     Indication: Meningitis
  4. PEMETREXED [Suspect]
     Active Substance: PEMETREXED
     Indication: Non-small cell lung cancer metastatic
     Dosage: UNK C1 - ONGOING
     Route: 042
     Dates: start: 20240405, end: 20240405
  5. PEMETREXED [Suspect]
     Active Substance: PEMETREXED
     Indication: Pneumonia
     Dosage: 500 MILLIGRAM/SQ. METER
     Route: 042
     Dates: start: 20240510
  6. PEMETREXED [Suspect]
     Active Substance: PEMETREXED
     Indication: Meningitis
  7. PEMBROLIZUMAB [Suspect]
     Active Substance: PEMBROLIZUMAB
     Indication: Non-small cell lung cancer metastatic
     Dosage: 200 MILLIGRAM (1Q3W, C1 - ONGOING)
     Route: 042
     Dates: start: 20240405, end: 20240405
  8. PEMBROLIZUMAB [Suspect]
     Active Substance: PEMBROLIZUMAB
     Dosage: 200 MILLIGRAM (1Q3W, C1 - ONGOING)
     Route: 042
     Dates: start: 20240510, end: 20240712
  9. TECAGINLIMAB [Suspect]
     Active Substance: TECAGINLIMAB
     Indication: Non-small cell lung cancer metastatic
     Dosage: UNK, C1 - ONGOING
     Route: 042
     Dates: start: 20240405
  10. TECAGINLIMAB [Suspect]
     Active Substance: TECAGINLIMAB
     Indication: Pneumonia
  11. TECAGINLIMAB [Suspect]
     Active Substance: TECAGINLIMAB
     Indication: Meningitis
  12. ACETAMINOPHEN [Concomitant]
     Active Substance: ACETAMINOPHEN
     Indication: Pneumonia
     Dosage: UNK
     Route: 065
     Dates: start: 20160301
  13. ACETAMINOPHEN [Concomitant]
     Active Substance: ACETAMINOPHEN
     Indication: Meningitis
  14. AMOXICILLIN [Concomitant]
     Active Substance: AMOXICILLIN
     Indication: Product used for unknown indication
     Dosage: UNK
     Route: 065
     Dates: start: 20240416, end: 20240419
  15. BUDESONIDE [Concomitant]
     Active Substance: BUDESONIDE
     Indication: Pneumonia
     Dosage: UNK
     Route: 065
     Dates: start: 20240414, end: 20240416
  16. BUDESONIDE [Concomitant]
     Active Substance: BUDESONIDE
     Indication: Meningitis
     Dosage: UNK
     Route: 065
     Dates: start: 20240424
  17. CEFDITOREN [Concomitant]
     Active Substance: CEFDITOREN
     Indication: Pneumonia
     Dosage: UNK
     Route: 065
     Dates: start: 20240424
  18. CEFDITOREN [Concomitant]
     Active Substance: CEFDITOREN
     Indication: Meningitis
  19. CETIRIZINE [Concomitant]
     Active Substance: CETIRIZINE HYDROCHLORIDE
     Indication: Product used for unknown indication
     Dosage: UNK
     Route: 065
     Dates: start: 20240412, end: 20240414
  20. CLAVULANIC ACID [Concomitant]
     Active Substance: CLAVULANIC ACID
     Indication: Product used for unknown indication
     Dosage: UNK
     Route: 065
     Dates: start: 20240416, end: 20240419
  21. CODEINE PHOSPHATE [Concomitant]
     Active Substance: CODEINE PHOSPHATE
     Indication: Pneumonia
     Dosage: UNK
     Route: 065
     Dates: start: 20240527
  22. CODEINE PHOSPHATE [Concomitant]
     Active Substance: CODEINE PHOSPHATE
     Indication: Meningitis
  23. DEXAMETHASONE [Concomitant]
     Active Substance: DEXAMETHASONE
     Indication: Pneumonia
     Dosage: UNK
     Route: 065
     Dates: start: 20240405, end: 20240405
  24. DEXAMETHASONE [Concomitant]
     Active Substance: DEXAMETHASONE
     Indication: Meningitis
     Dosage: UNK
     Route: 065
     Dates: start: 20240621, end: 20240621
  25. DEXKETOPROFEN [Concomitant]
     Active Substance: DEXKETOPROFEN
     Indication: Pneumonia
     Dosage: UNK
     Route: 065
     Dates: start: 20240412, end: 20240414
  26. DEXKETOPROFEN [Concomitant]
     Active Substance: DEXKETOPROFEN
     Indication: Meningitis
  27. FILGRASTIM [Concomitant]
     Active Substance: FILGRASTIM
     Indication: Product used for unknown indication
     Dosage: UNK
     Route: 065
     Dates: start: 20240419, end: 20240419
  28. GRANULOCYTE COLONY-STIMULATING FACTOR NOS [Concomitant]
     Active Substance: GRANULOCYTE COLONY-STIMULATING FACTOR NOS
     Indication: Pneumonia
     Dosage: UNK
     Route: 065
     Dates: start: 20240623
  29. GRANULOCYTE COLONY-STIMULATING FACTOR NOS [Concomitant]
     Active Substance: GRANULOCYTE COLONY-STIMULATING FACTOR NOS
     Indication: Meningitis
  30. IBUPROFEN [Concomitant]
     Active Substance: IBUPROFEN
     Indication: Pneumonia
     Dosage: UNK
     Route: 065
     Dates: start: 20160301
  31. IBUPROFEN [Concomitant]
     Active Substance: IBUPROFEN
     Indication: Meningitis
  32. IPRATROPIUM BROMIDE [Concomitant]
     Active Substance: IPRATROPIUM BROMIDE\IPRATROPIUM BROMIDE ANHYDROUS
     Indication: Pneumonia
     Dosage: UNK
     Route: 065
     Dates: start: 20240414, end: 20240416
  33. IPRATROPIUM BROMIDE [Concomitant]
     Active Substance: IPRATROPIUM BROMIDE\IPRATROPIUM BROMIDE ANHYDROUS
     Indication: Meningitis
     Dosage: UNK
     Route: 065
     Dates: start: 20240424
  34. METAMIZOLE [Concomitant]
     Active Substance: METAMIZOLE
     Indication: Product used for unknown indication
     Dosage: UNK
     Route: 065
     Dates: start: 20240414, end: 20240414
  35. METOCLOPRAMIDE [Concomitant]
     Active Substance: METOCLOPRAMIDE
     Indication: Pneumonia
     Dosage: UNK
     Route: 065
     Dates: start: 20240408, end: 20240411
  36. METOCLOPRAMIDE [Concomitant]
     Active Substance: METOCLOPRAMIDE
     Indication: Meningitis
     Dosage: UNK
     Route: 065
     Dates: start: 20240712, end: 20240712
  37. METHYLPREDNISOLONE ACEPONATE [Concomitant]
     Active Substance: METHYLPREDNISOLONE ACEPONATE
     Indication: Pneumonia
     Dosage: UNK
     Route: 065
     Dates: start: 20240415
  38. METHYLPREDNISOLONE ACEPONATE [Concomitant]
     Active Substance: METHYLPREDNISOLONE ACEPONATE
     Indication: Meningitis
  39. OMEPRAZOLE [Concomitant]
     Active Substance: OMEPRAZOLE
     Indication: Pneumonia
     Dosage: UNK
     Route: 065
     Dates: start: 20240412, end: 20240416
  40. OMEPRAZOLE [Concomitant]
     Active Substance: OMEPRAZOLE
     Indication: Meningitis
     Dosage: UNK
     Route: 065
     Dates: start: 20240628, end: 20240724
  41. ONDANSETRON [Concomitant]
     Active Substance: ONDANSETRON
     Indication: Pneumonia
     Dosage: UNK
     Route: 065
     Dates: start: 20240405, end: 20240408
  42. ONDANSETRON [Concomitant]
     Active Substance: ONDANSETRON
     Indication: Meningitis
     Dosage: UNK
     Route: 065
     Dates: start: 20240621, end: 20240621
  43. PREDNISONE [Concomitant]
     Active Substance: PREDNISONE
     Indication: Pneumonia
     Dosage: UNK
     Route: 065
     Dates: start: 20240412, end: 20240414
  44. PREDNISONE [Concomitant]
     Active Substance: PREDNISONE
     Indication: Meningitis
  45. PREDNICARBATE [Concomitant]
     Active Substance: PREDNICARBATE
     Indication: Product used for unknown indication
     Dosage: UNK
     Route: 065
     Dates: start: 20240412, end: 20240414
  46. PIPERACILLIN [Concomitant]
     Active Substance: PIPERACILLIN
     Indication: Product used for unknown indication
     Dosage: UNK
     Route: 065
     Dates: start: 20240414, end: 20240416
  47. SUMATRIPTAN SUCCINATE [Concomitant]
     Active Substance: SUMATRIPTAN SUCCINATE
     Indication: Pneumonia
     Dosage: UNK
     Route: 065
     Dates: start: 20160301
  48. SUMATRIPTAN SUCCINATE [Concomitant]
     Active Substance: SUMATRIPTAN SUCCINATE
     Indication: Meningitis
  49. TAZOBACTAM [Concomitant]
     Active Substance: TAZOBACTAM
     Indication: Product used for unknown indication
     Dosage: UNK
     Route: 065
     Dates: start: 20240414, end: 20240416
  50. VITAMIN B12 [Concomitant]
     Active Substance: CYANOCOBALAMIN
     Indication: Pneumonia
     Dosage: UNK
     Route: 065
     Dates: start: 20240401, end: 20240401
  51. VITAMIN B12 [Concomitant]
     Active Substance: CYANOCOBALAMIN
     Indication: Meningitis
  52. FOLIC ACID [Concomitant]
     Active Substance: FOLIC ACID
     Indication: Pneumonia
     Dosage: UNK
     Route: 065
     Dates: start: 20240628, end: 20240629
  53. FOLIC ACID [Concomitant]
     Active Substance: FOLIC ACID
     Indication: Meningitis
  54. ACETYLCYSTEINE [Concomitant]
     Active Substance: ACETYLCYSTEINE
     Indication: Pneumonia
     Dosage: UNK
     Route: 065
     Dates: start: 20240628, end: 20240629
  55. ACETYLCYSTEINE [Concomitant]
     Active Substance: ACETYLCYSTEINE
     Indication: Meningitis
  56. CEFTRIAXONE [Concomitant]
     Active Substance: CEFTRIAXONE\CEFTRIAXONE SODIUM
     Indication: Pneumonia
     Dosage: UNK
     Route: 065
     Dates: start: 20240627, end: 20240629
  57. CEFTRIAXONE [Concomitant]
     Active Substance: CEFTRIAXONE\CEFTRIAXONE SODIUM
     Indication: Meningitis

REACTIONS (3)
  - Meningitis [Recovered/Resolved]
  - Febrile neutropenia [Recovered/Resolved]
  - Pneumonia [Recovered/Resolved]

NARRATIVE: CASE EVENT DATE: 20240414
